FAERS Safety Report 19201985 (Version 1)
Quarter: 2021Q2

REPORT INFORMATION
  Report Type: Spontaneous
  Country: US (occurrence: US)
  Receive Date: 20210430
  Receipt Date: 20210430
  Transmission Date: 20210717
  Serious: No
  Sender: FDA-Public Use
  Company Number: US-UNITED THERAPEUTICS-UNT-2021-007202

PATIENT
  Age: 44 Year
  Sex: Female
  Weight: 56.69 kg

DRUGS (3)
  1. REMODULIN [Suspect]
     Active Substance: TREPROSTINIL
     Indication: PULMONARY ARTERIAL HYPERTENSION
     Dosage: UNK UNK, CONTINUING
     Route: 058
     Dates: start: 20190627
  2. REMODULIN [Suspect]
     Active Substance: TREPROSTINIL
     Dosage: 0.033 ?G/KG, CONTINUING
     Route: 058
  3. SILDENAFIL. [Concomitant]
     Active Substance: SILDENAFIL
     Indication: PRODUCT USED FOR UNKNOWN INDICATION
     Dosage: UNK
     Route: 065

REACTIONS (10)
  - Paraesthesia [Unknown]
  - Limb injury [Unknown]
  - Pyrexia [Unknown]
  - Product administration interrupted [Unknown]
  - Dizziness postural [Unknown]
  - Sinus headache [Unknown]
  - Feeling abnormal [Unknown]
  - Flushing [Unknown]
  - Feeling hot [Unknown]
  - Device dislocation [Unknown]

NARRATIVE: CASE EVENT DATE: 20210419
